FAERS Safety Report 14381247 (Version 1)
Quarter: 2018Q1

REPORT INFORMATION
  Report Type: Spontaneous
  Country: US (occurrence: US)
  Receive Date: 20180111
  Receipt Date: 20180111
  Transmission Date: 20180509
  Serious: No
  Sender: FDA-Public Use
  Company Number: None

PATIENT
  Age: 49 Year
  Sex: Female
  Weight: 63.96 kg

DRUGS (1)
  1. ENTYVIO [Suspect]
     Active Substance: VEDOLIZUMAB
     Indication: CROHN^S DISEASE
     Dosage: 300 MG EVERY 8 WEEKS IV
     Route: 042
     Dates: start: 20171108, end: 20171128

REACTIONS (3)
  - Tachycardia [None]
  - Tinnitus [None]
  - Disorientation [None]

NARRATIVE: CASE EVENT DATE: 20171115
